FAERS Safety Report 19487664 (Version 1)
Quarter: 2021Q3

REPORT INFORMATION
  Report Type: Report from Study
  Country: US (occurrence: US)
  Receive Date: 20210702
  Receipt Date: 20210702
  Transmission Date: 20211014
  Serious: Yes (Other)
  Sender: FDA-Public Use
  Company Number: US-JNJFOC-20210665034

PATIENT
  Age: 28 Year
  Sex: Female

DRUGS (3)
  1. SPRAVATO [Suspect]
     Active Substance: ESKETAMINE
     Dosage: 56 MG, TOTAL 2 DOSES
     Dates: start: 20210219, end: 20210224
  2. SPRAVATO [Suspect]
     Active Substance: ESKETAMINE
     Indication: DEPRESSION
     Dosage: 28 MG, TOTAL 6 DOSES
     Dates: start: 20210127, end: 20210217
  3. SPRAVATO [Suspect]
     Active Substance: ESKETAMINE
     Dosage: 84 MG, TOTAL 8 DOSES
     Dates: start: 20210226, end: 20210421

REACTIONS (1)
  - Suicidal ideation [Unknown]
